FAERS Safety Report 18174343 (Version 2)
Quarter: 2020Q4

REPORT INFORMATION
  Report Type: Report from Study
  Country: CA (occurrence: CA)
  Receive Date: 20200820
  Receipt Date: 20201222
  Transmission Date: 20210113
  Serious: Yes (Other)
  Sender: FDA-Public Use
  Company Number: NVSC2020CA227741

PATIENT
  Age: 35 Year
  Sex: Female

DRUGS (1)
  1. REVOLADE [Suspect]
     Active Substance: ELTROMBOPAG
     Indication: IMMUNE THROMBOCYTOPENIA
     Dosage: 75 MG (STRENGTH: 25-50 MG)
     Route: 048
     Dates: start: 20200712

REACTIONS (8)
  - Toothache [Unknown]
  - Tooth abscess [Unknown]
  - Swelling face [Unknown]
  - Haemorrhage [Unknown]
  - Tooth impacted [Unknown]
  - Platelet count abnormal [Unknown]
  - Contusion [Unknown]
  - Product dose omission issue [Unknown]

NARRATIVE: CASE EVENT DATE: 20201214
